FAERS Safety Report 21440036 (Version 6)
Quarter: 2023Q1

REPORT INFORMATION
  Report Type: Report from Study
  Country: CA (occurrence: CA)
  Receive Date: 20221011
  Receipt Date: 20230328
  Transmission Date: 20230417
  Serious: Yes (Hospitalization, Other)
  Sender: FDA-Public Use
  Company Number: CA-JNJFOC-20220156939

PATIENT
  Age: 27 Year
  Sex: Female
  Weight: 135 kg

DRUGS (2)
  1. REMICADE [Suspect]
     Active Substance: INFLIXIMAB
     Indication: Crohn^s disease
     Dosage: EXPIRY DATE: 01-DEC-2024, 28-FEB-2025?HAD LAST DOSE OF REMICADE ON 26-JUL-2022
     Route: 041
     Dates: start: 20180927
  2. REMICADE [Suspect]
     Active Substance: INFLIXIMAB
     Dosage: EXPIRY DATE: 01-JUL-2025
     Route: 042

REACTIONS (7)
  - Caesarean section [Unknown]
  - Exposure during pregnancy [Recovered/Resolved]
  - Platelet count decreased [Recovered/Resolved]
  - Crohn^s disease [Unknown]
  - Nasopharyngitis [Recovered/Resolved]
  - COVID-19 [Recovered/Resolved]
  - Off label use [Unknown]

NARRATIVE: CASE EVENT DATE: 20180927
